FAERS Safety Report 4962392-4 (Version None)
Quarter: 2006Q1

REPORT INFORMATION
  Report Type: 
  Country: None (occurrence: None)
  Receive Date: 20060201
  Receipt Date: 20051108
  Transmission Date: 20060701
  Serious: No
  Sender: FDA-Public Use
  Company Number: 2005PV004319

PATIENT
  Age: 64 Year
  Sex: Female
  Weight: 99.7913 kg

DRUGS (5)
  1. BYETTA [Suspect]
     Indication: DIABETES MELLITUS NON-INSULIN-DEPENDENT
     Dosage: 5 MCG;BID;SC
     Route: 058
     Dates: start: 20051002, end: 20051024
  2. NOVOLOG MIX 70/30 [Concomitant]
  3. MONOPRIL [Concomitant]
  4. CARDIZEM ER [Concomitant]
  5. PROPRANOLOL [Concomitant]

REACTIONS (7)
  - DECREASED APPETITE [None]
  - DYSPEPSIA [None]
  - EARLY SATIETY [None]
  - FATIGUE [None]
  - NAUSEA [None]
  - PALPITATIONS [None]
  - STOMACH DISCOMFORT [None]
